FAERS Safety Report 8365465-1 (Version None)
Quarter: 2012Q2

REPORT INFORMATION
  Report Type: 
  Country: None (occurrence: None)
  Receive Date: 20120516
  Receipt Date: 20120508
  Transmission Date: 20120825
  Serious: Yes (Other)
  Sender: FDA-Public Use
  Company Number: PHHY2012BR041434

PATIENT
  Sex: Female

DRUGS (3)
  1. LOSARTAN POTASSIUM [Suspect]
     Dosage: 150 MG, UNK
  2. AMLODIPINE BESYLATE [Suspect]
     Dosage: 5 MG, UNK
  3. HYDROCHLOROTHIAZIDE [Suspect]
     Dosage: 25 MG, UNK

REACTIONS (1)
  - BLOOD PRESSURE INCREASED [None]
